FAERS Safety Report 7224518-1 (Version None)
Quarter: 2011Q1

REPORT INFORMATION
  Report Type: 
  Country: None (occurrence: None)
  Receive Date: 20110113
  Receipt Date: 20110107
  Transmission Date: 20110831
  Serious: No
  Sender: FDA-Public Use
  Company Number: US-PFIZER INC-2011004819

PATIENT
  Age: 72 Year
  Sex: Female

DRUGS (6)
  1. LIPITOR [Suspect]
     Dosage: 10 MG, UNK
  2. EVISTA [Suspect]
     Dosage: 60 MG, UNK
  3. NEXIUM [Suspect]
     Dosage: 40 MG, UNK
  4. CANASA [Suspect]
     Dosage: UNK
  5. AZATHIOPRINE [Suspect]
     Dosage: 50 MG, UNK
  6. ASACOL [Suspect]
     Dosage: 400 MG, UNK

REACTIONS (1)
  - BLISTER [None]
